FAERS Safety Report 14471710 (Version 2)
Quarter: 2018Q3

REPORT INFORMATION
  Report Type: Spontaneous
  Country: US (occurrence: US)
  Receive Date: 20180131
  Receipt Date: 20180731
  Transmission Date: 20181010
  Serious: Yes (Hospitalization, Other)
  Sender: FDA-Public Use
  Company Number: US-DSJP-DSU-2017-137487

PATIENT

DRUGS (3)
  1. BENICAR [Suspect]
     Active Substance: OLMESARTAN MEDOXOMIL
     Indication: PRODUCT USED FOR UNKNOWN INDICATION
     Dosage: 40 MG, QD
     Route: 048
     Dates: start: 20130701, end: 20160722
  2. AZOR [Suspect]
     Active Substance: AMLODIPINE BESYLATE\OLMESARTAN MEDOXOMIL
     Indication: PRODUCT USED FOR UNKNOWN INDICATION
     Dosage: 5/20 MG, UNK
     Dates: start: 20130701, end: 20160722
  3. BENICAR HCT [Suspect]
     Active Substance: HYDROCHLOROTHIAZIDE\OLMESARTAN MEDOXOMIL
     Indication: PRODUCT USED FOR UNKNOWN INDICATION
     Dosage: 40/12.5 MG , QD
     Route: 048
     Dates: start: 20130701, end: 20160722

REACTIONS (12)
  - Pneumatosis intestinalis [Unknown]
  - Sprue-like enteropathy [Recovering/Resolving]
  - Gastrooesophageal reflux disease [Recovered/Resolved]
  - Clostridium difficile colitis [Unknown]
  - Haemorrhoids [Not Recovered/Not Resolved]
  - Sepsis [Recovered/Resolved]
  - Helicobacter test positive [Not Recovered/Not Resolved]
  - Constipation [Unknown]
  - Cholelithiasis [Recovered/Resolved]
  - Acute kidney injury [Recovered/Resolved]
  - Hiatus hernia [Unknown]
  - Small intestinal obstruction [Unknown]

NARRATIVE: CASE EVENT DATE: 20151001
